FAERS Safety Report 9438375 (Version 1)
Quarter: 2013Q3

REPORT INFORMATION
  Report Type: Spontaneous
  Country: US (occurrence: US)
  Receive Date: 20130802
  Receipt Date: 20130802
  Transmission Date: 20140515
  Serious: No
  Sender: FDA-Public Use
  Company Number: US-BRISTOL-MYERS SQUIBB COMPANY-17205493

PATIENT
  Sex: Female

DRUGS (2)
  1. COUMADIN [Suspect]
  2. WARFARIN SODIUM [Suspect]
     Dosage: 1DF:TAKING 3 MG 4 TIMES/WEEK AND 4 MG 3 TIMES/WEEK.

REACTIONS (7)
  - International normalised ratio decreased [Unknown]
  - Thirst [Unknown]
  - Dehydration [Unknown]
  - Fatigue [Unknown]
  - Feeling cold [Unknown]
  - Headache [Unknown]
  - Dyspnoea [Unknown]
